FAERS Safety Report 4396319-3 (Version None)
Quarter: 2004Q3

REPORT INFORMATION
  Report Type: 
  Country: None (occurrence: None)
  Receive Date: 20040713
  Receipt Date: 20040601
  Transmission Date: 20050211
  Serious: Yes (Hospitalization)
  Sender: FDA-Public Use
  Company Number: DE-GLAXOSMITHKLINE-D0043923A

PATIENT
  Age: 7 Year
  Sex: Male
  Weight: 32 kg

DRUGS (3)
  1. LAMICTAL [Suspect]
     Indication: EPILEPSY
     Route: 048
     Dates: start: 20031101
  2. ORFIRIL [Concomitant]
     Route: 065
  3. ETHOSUXIMIDE [Concomitant]
     Indication: EPILEPSY
     Dosage: 15MGKD PER DAY
     Route: 065

REACTIONS (3)
  - AGGRESSION [None]
  - CONDITION AGGRAVATED [None]
  - EXCITABILITY [None]
